FAERS Safety Report 16819912 (Version 1)
Quarter: 2019Q3

REPORT INFORMATION
  Report Type: Report from Study
  Country: US (occurrence: US)
  Receive Date: 20190917
  Receipt Date: 20190917
  Transmission Date: 20191005
  Serious: Yes (Death)
  Sender: FDA-Public Use
  Company Number: US-ELI_LILLY_AND_COMPANY-US201909007034

PATIENT

DRUGS (2)
  1. ERIBULIN [Concomitant]
     Active Substance: ERIBULIN
     Indication: TRANSITIONAL CELL CARCINOMA
     Dosage: 1.4 MG/M2, CYCLICAL
     Route: 042
  2. GEMCITABINE HYDROCHLORIDE. [Suspect]
     Active Substance: GEMCITABINE HYDROCHLORIDE
     Indication: TRANSITIONAL CELL CARCINOMA
     Dosage: 1000 MG/M2, CYCLICAL
     Route: 042

REACTIONS (2)
  - Pneumonitis [Fatal]
  - Pulmonary embolism [Fatal]
